FAERS Safety Report 20341206 (Version 5)
Quarter: 2022Q4

REPORT INFORMATION
  Report Type: Report from Study
  Country: US (occurrence: US)
  Receive Date: 20220117
  Receipt Date: 20221025
  Transmission Date: 20230112
  Serious: No
  Sender: FDA-Public Use
  Company Number: US-NOVARTISTESTPH-NVSC2022US007661

PATIENT
  Sex: Male

DRUGS (1)
  1. ENTRESTO [Suspect]
     Active Substance: SACUBITRIL\VALSARTAN
     Indication: Product used for unknown indication
     Dosage: 1 DOSAGE FORM, BID (97/103MG)
     Route: 048
     Dates: start: 201801

REACTIONS (4)
  - Heart rate decreased [Recovering/Resolving]
  - Weight fluctuation [Unknown]
  - Fatigue [Unknown]
  - Blood pressure decreased [Recovering/Resolving]
